FAERS Safety Report 22256202 (Version 1)
Quarter: 2023Q2

REPORT INFORMATION
  Report Type: Spontaneous
  Country: FR (occurrence: FR)
  Receive Date: 20230426
  Receipt Date: 20230426
  Transmission Date: 20230721
  Serious: Yes (Hospitalization)
  Sender: FDA-Public Use
  Company Number: None

PATIENT
  Age: 18 Year
  Sex: Female
  Weight: 45 kg

DRUGS (3)
  1. FLURBIPROFEN [Suspect]
     Active Substance: FLURBIPROFEN
     Indication: Intentional overdose
     Dosage: 5 CPS DE 100 MG, 1 TOTAL
     Route: 048
     Dates: start: 20211206, end: 20211206
  2. BROMAZEPAM [Suspect]
     Active Substance: BROMAZEPAM
     Indication: Intentional overdose
     Dosage: 1 TOTAL
     Route: 048
     Dates: start: 20211206, end: 20211206
  3. IBUPROFEN [Suspect]
     Active Substance: IBUPROFEN
     Indication: Intentional overdose
     Dosage: 3 CPS DE 400 MG, 1 TOTAL
     Route: 048
     Dates: start: 20211206, end: 20211206

REACTIONS (3)
  - Vision blurred [Unknown]
  - Diplopia [Unknown]
  - Intentional overdose [Recovered/Resolved]

NARRATIVE: CASE EVENT DATE: 20211206
